FAERS Safety Report 11951839 (Version 1)
Quarter: 2016Q1

REPORT INFORMATION
  Report Type: Spontaneous
  Country: US (occurrence: None)
  Receive Date: 20160122
  Receipt Date: 20160122
  Transmission Date: 20160526
  Serious: No
  Sender: FDA-Public Use
  Company Number: None

PATIENT
  Age: 60 Year
  Sex: Female

DRUGS (5)
  1. CYTOXAN [Concomitant]
     Active Substance: CYCLOPHOSPHAMIDE
  2. KYPROLIS [Suspect]
     Active Substance: CARFILZOMIB
     Indication: PLASMA CELL MYELOMA
     Dates: start: 20151116
  3. DEX [Concomitant]
     Active Substance: DEXAMETHASONE
  4. REVLIMID [Suspect]
     Active Substance: LENALIDOMIDE
     Indication: PLASMA CELL MYELOMA
     Dosage: UNKNOWN  QD FOR 28 DAY CYCL  ORAL
     Route: 048
  5. VELCADE [Concomitant]
     Active Substance: BORTEZOMIB

REACTIONS (2)
  - Skin lesion [None]
  - Bone lesion [None]

NARRATIVE: CASE EVENT DATE: 20160120
